FAERS Safety Report 6011785-5 (Version None)
Quarter: 2008Q4

REPORT INFORMATION
  Report Type: 
  Country: None (occurrence: None)
  Receive Date: 20081218
  Receipt Date: 20080514
  Transmission Date: 20090506
  Serious: No
  Sender: FDA-Public Use
  Company Number: US-ABBOTT-08P-163-0451716-00

PATIENT
  Sex: Female
  Weight: 62.198 kg

DRUGS (2)
  1. MERIDIA [Suspect]
     Indication: WEIGHT CONTROL
     Route: 048
     Dates: start: 20070501, end: 20070701
  2. RIZATRIPTAN BENZOATE [Concomitant]
     Indication: MIGRAINE
     Dosage: 5-10 TIMES PER MONTH AS NEEDED
     Route: 048
     Dates: start: 20030101

REACTIONS (1)
  - TOOTHACHE [None]
